FAERS Safety Report 5734077-8 (Version None)
Quarter: 2008Q2

REPORT INFORMATION
  Report Type: 
  Country: None (occurrence: None)
  Receive Date: 20080509
  Receipt Date: 20080429
  Transmission Date: 20081010
  Serious: Yes (Other)
  Sender: FDA-Public Use
  Company Number: US-PFIZER INC-2008038695

PATIENT
  Sex: Female
  Weight: 70.3 kg

DRUGS (6)
  1. DILANTIN [Suspect]
     Indication: CONVULSION
     Route: 048
     Dates: start: 20070101, end: 20070101
  2. DEPAKOTE [Suspect]
     Indication: CONVULSION
     Route: 048
  3. ATORVASTATIN [Concomitant]
     Indication: BLOOD CHOLESTEROL
  4. LEVOFLOXACIN [Concomitant]
     Dates: start: 20070315
  5. ACETYLSALICYLIC ACID SRT [Concomitant]
  6. ACETAMINOPHEN [Concomitant]

REACTIONS (4)
  - ANOREXIA [None]
  - GRANULOMA [None]
  - SKIN LESION [None]
  - WEIGHT DECREASED [None]
